FAERS Safety Report 6568489-X (Version None)
Quarter: 2010Q1

REPORT INFORMATION
  Report Type: 
  Country: None (occurrence: None)
  Receive Date: 20100203
  Receipt Date: 20100127
  Transmission Date: 20100710
  Serious: Yes (Hospitalization)
  Sender: FDA-Public Use
  Company Number: B0629299A

PATIENT
  Sex: Female

DRUGS (1)
  1. LAMICTAL [Suspect]
     Indication: BIPOLAR DISORDER
     Dosage: 200MG PER DAY
     Route: 048
     Dates: start: 20091109, end: 20091212

REACTIONS (9)
  - ANGIOEDEMA [None]
  - FACE OEDEMA [None]
  - HYPERTHERMIA [None]
  - HYPOTENSION [None]
  - HYPOTHERMIA [None]
  - LIP SWELLING [None]
  - PRURITUS [None]
  - RASH MACULO-PAPULAR [None]
  - URTICARIA [None]
